FAERS Safety Report 17956747 (Version 40)
Quarter: 2025Q2

REPORT INFORMATION
  Report Type: Report from Study
  Country: US (occurrence: US)
  Receive Date: 20200629
  Receipt Date: 20250519
  Transmission Date: 20250716
  Serious: Yes (Other)
  Sender: TAKEDA
  Company Number: US-SHIRE-US202020949

PATIENT
  Age: 39 Year
  Sex: Female
  Weight: 66 kg

DRUGS (65)
  1. HUMAN IMMUNOGLOBULIN G [Suspect]
     Active Substance: HUMAN IMMUNOGLOBULIN G
     Indication: Immunodeficiency common variable
     Dosage: 12 GRAM, 1/WEEK
     Dates: start: 20171214
  2. HUMAN IMMUNOGLOBULIN G [Suspect]
     Active Substance: HUMAN IMMUNOGLOBULIN G
     Dosage: 12 GRAM, 1/WEEK
     Dates: start: 20180112
  3. HUMAN IMMUNOGLOBULIN G [Suspect]
     Active Substance: HUMAN IMMUNOGLOBULIN G
     Dosage: 12 GRAM, 1/WEEK
     Dates: start: 20210111
  4. HUMAN IMMUNOGLOBULIN G [Suspect]
     Active Substance: HUMAN IMMUNOGLOBULIN G
  5. HUMAN IMMUNOGLOBULIN G [Suspect]
     Active Substance: HUMAN IMMUNOGLOBULIN G
     Dosage: 12 GRAM, 1/WEEK
  6. ACETAMINOPHEN [Concomitant]
     Active Substance: ACETAMINOPHEN
  7. NASALCROM [Concomitant]
     Active Substance: CROMOLYN SODIUM
  8. FAMOTIDINE [Concomitant]
     Active Substance: FAMOTIDINE
  9. KETOCONAZOLE [Concomitant]
     Active Substance: KETOCONAZOLE
  10. COLACE [Concomitant]
     Active Substance: DOCUSATE SODIUM
  11. IBUPROFEN [Concomitant]
     Active Substance: IBUPROFEN
  12. VALACYCLOVIR [Concomitant]
     Active Substance: VALACYCLOVIR HYDROCHLORIDE
  13. SINGULAIR [Concomitant]
     Active Substance: MONTELUKAST SODIUM
  14. TRILEPTAL [Concomitant]
     Active Substance: OXCARBAZEPINE
  15. AZELASTINE HYDROCHLORIDE [Concomitant]
     Active Substance: AZELASTINE HYDROCHLORIDE
  16. KEPPRA [Concomitant]
     Active Substance: LEVETIRACETAM
  17. BANOPHEN [Concomitant]
     Active Substance: DIPHENHYDRAMINE HYDROCHLORIDE
  18. BEBTELOVIMAB [Concomitant]
     Active Substance: BEBTELOVIMAB
  19. LEVOTHYROXINE SODIUM [Concomitant]
     Active Substance: LEVOTHYROXINE SODIUM
  20. EPIPEN [Concomitant]
     Active Substance: EPINEPHRINE
  21. PULMICORT TURBUHALER [Concomitant]
     Active Substance: BUDESONIDE
  22. LIDOCAINE [Concomitant]
     Active Substance: LIDOCAINE
  23. PIPER METHYSTICUM ROOT [Concomitant]
     Active Substance: PIPER METHYSTICUM ROOT
  24. FLUCONAZOLE [Concomitant]
     Active Substance: FLUCONAZOLE
     Indication: Product used for unknown indication
  25. TESSALON [Concomitant]
     Active Substance: BENZONATATE
  26. IPRATROPIUM BROMIDE [Concomitant]
     Active Substance: IPRATROPIUM BROMIDE
  27. DANTROLENE SODIUM [Concomitant]
     Active Substance: DANTROLENE SODIUM
  28. ORPHENADRINE [Concomitant]
     Active Substance: ORPHENADRINE
  29. DIPHENHYDRAMINE HYDROCHLORIDE [Concomitant]
     Active Substance: DIPHENHYDRAMINE HYDROCHLORIDE
  30. HYDROXYZINE HYDROCHLORIDE [Concomitant]
     Active Substance: HYDROXYZINE HYDROCHLORIDE
  31. PRUDOXIN [Concomitant]
     Active Substance: DOXEPIN HYDROCHLORIDE
  32. PATADAY [Concomitant]
     Active Substance: OLOPATADINE HYDROCHLORIDE
  33. ATROVENT HFA [Concomitant]
     Active Substance: IPRATROPIUM BROMIDE
  34. AZITHROMYCIN [Concomitant]
     Active Substance: AZITHROMYCIN
  35. ASPIRIN [Concomitant]
     Active Substance: ASPIRIN
  36. EPINEPHRINE [Concomitant]
     Active Substance: EPINEPHRINE
  37. LIDOCAINE\PRILOCAINE [Concomitant]
     Active Substance: LIDOCAINE\PRILOCAINE
  38. GABAPENTIN [Concomitant]
     Active Substance: GABAPENTIN
  39. KLONOPIN [Concomitant]
     Active Substance: CLONAZEPAM
  40. LEVALBUTEROL HYDROCHLORIDE [Concomitant]
     Active Substance: LEVALBUTEROL HYDROCHLORIDE
  41. Vsl [Concomitant]
  42. Lmx [Concomitant]
  43. DIFLUCAN [Concomitant]
     Active Substance: FLUCONAZOLE
  44. DANTROLENE [Concomitant]
     Active Substance: DANTROLENE
  45. CEFDINIR [Concomitant]
     Active Substance: CEFDINIR
  46. PANTOPRAZOLE [Concomitant]
     Active Substance: PANTOPRAZOLE
  47. ZOLOFT [Concomitant]
     Active Substance: SERTRALINE HYDROCHLORIDE
  48. PROPRANOLOL [Concomitant]
     Active Substance: PROPRANOLOL HYDROCHLORIDE
  49. ZYRTEC [Concomitant]
     Active Substance: CETIRIZINE HYDROCHLORIDE
  50. FLUDROCORTISONE ACETATE [Concomitant]
     Active Substance: FLUDROCORTISONE ACETATE
  51. RANITIDINE [Concomitant]
     Active Substance: RANITIDINE
  52. LEVOXYL [Concomitant]
     Active Substance: LEVOTHYROXINE SODIUM
  53. MIRTAZAPINE [Concomitant]
     Active Substance: MIRTAZAPINE
  54. XOLAIR [Concomitant]
     Active Substance: OMALIZUMAB
  55. L-GLUTAMINE [Concomitant]
     Active Substance: GLUTAMINE
  56. Berberine complex [Concomitant]
  57. VITAMIN D3 [Concomitant]
     Active Substance: CHOLECALCIFEROL
  58. BROMELAINS [Concomitant]
     Active Substance: BROMELAINS
  59. Papain V [Concomitant]
  60. Methyl b complex [Concomitant]
  61. Endozin [Concomitant]
  62. ZINC [Concomitant]
     Active Substance: ZINC
  63. ATROVENT HFA [Concomitant]
     Active Substance: IPRATROPIUM BROMIDE
  64. AMITRIPTYLINE HYDROCHLORIDE [Concomitant]
     Active Substance: AMITRIPTYLINE HYDROCHLORIDE
  65. MELATONIN [Concomitant]
     Active Substance: MELATONIN

REACTIONS (45)
  - Cytomegalovirus infection [Unknown]
  - Pneumonia mycoplasmal [Unknown]
  - Arthritis infective [Unknown]
  - Pneumonia [Unknown]
  - Bacterial vulvovaginitis [Unknown]
  - Viral upper respiratory tract infection [Recovered/Resolved]
  - Inappropriate schedule of product administration [Unknown]
  - Product dose omission issue [Unknown]
  - Infusion related reaction [Unknown]
  - Foot fracture [Unknown]
  - Epstein-Barr virus infection [Unknown]
  - Ehlers-Danlos syndrome [Unknown]
  - Bacterial infection [Unknown]
  - Stress [Unknown]
  - Laryngitis [Unknown]
  - Infectious mononucleosis [Unknown]
  - Fungal skin infection [Not Recovered/Not Resolved]
  - Nasopharyngitis [Unknown]
  - Viral infection [Unknown]
  - Food allergy [Unknown]
  - Urinary tract infection [Unknown]
  - Fungal infection [Unknown]
  - COVID-19 [Unknown]
  - Candida infection [Unknown]
  - Gastrointestinal infection [Unknown]
  - General physical health deterioration [Unknown]
  - Dental caries [Unknown]
  - Infusion site discharge [Unknown]
  - Infection [Unknown]
  - Bacterial vaginosis [Unknown]
  - Tooth infection [Unknown]
  - Insurance issue [Unknown]
  - Food allergy [Unknown]
  - Product use issue [Unknown]
  - Asthma [Unknown]
  - Infusion site haemorrhage [Unknown]
  - Infusion site mass [Unknown]
  - Influenza [Unknown]
  - Contusion [Unknown]
  - Phlebitis [Unknown]
  - Infusion site bruising [Unknown]
  - Infusion site erythema [Unknown]
  - Hypersensitivity [Unknown]
  - Infusion site pain [Unknown]
  - Fatigue [Unknown]

NARRATIVE: CASE EVENT DATE: 20210429
